FAERS Safety Report 18389196 (Version 2)
Quarter: 2020Q4

REPORT INFORMATION
  Report Type: Spontaneous
  Country: IT (occurrence: IT)
  Receive Date: 20201015
  Receipt Date: 20201022
  Transmission Date: 20210114
  Serious: Yes (Death, Other)
  Sender: FDA-Public Use
  Company Number: IT-PFIZER INC-2020397812

PATIENT
  Age: 6 Year
  Sex: Male
  Weight: 22 kg

DRUGS (13)
  1. IDARUBICIN HCL [Suspect]
     Active Substance: IDARUBICIN HYDROCHLORIDE
     Indication: BURKITT^S LYMPHOMA
     Dosage: 10 MG/M2 OVER 4 HRS
  2. GRANULOCYTE COLONY STIMULATING FACTOR [Concomitant]
     Active Substance: GRANULOCYTE COLONY-STIMULATING FACTOR NOS
     Dosage: UNK
  3. MESNA. [Suspect]
     Active Substance: MESNA
     Indication: BURKITT^S LYMPHOMA
     Dosage: 500 MG/M2
  4. AMIKACIN. [Concomitant]
     Active Substance: AMIKACIN
     Indication: PRODUCT USED FOR UNKNOWN INDICATION
     Dosage: UNK
  5. MESNA. [Suspect]
     Active Substance: MESNA
     Dosage: 3000 MG/M2
  6. VANCOMYCIN [Concomitant]
     Active Substance: VANCOMYCIN
     Indication: PRODUCT USED FOR UNKNOWN INDICATION
     Dosage: UNK
  7. DEXAMETHASONE SODIUM PHOSPHATE. [Suspect]
     Active Substance: DEXAMETHASONE SODIUM PHOSPHATE
     Indication: BURKITT^S LYMPHOMA
     Dosage: 20 MG/M2 IN A DAY IN 3 DIVIDED DOSES (IV/PO)
  8. RITUXIMAB. [Suspect]
     Active Substance: RITUXIMAB
     Indication: BURKITT^S LYMPHOMA
     Dosage: 375 MG/M2
  9. IBRUTINIB [Suspect]
     Active Substance: IBRUTINIB
     Indication: BURKITT^S LYMPHOMA
     Dosage: 70 MG, 1X/DAY
     Route: 048
  10. CARBOPLATIN. [Suspect]
     Active Substance: CARBOPLATIN
     Indication: BURKITT^S LYMPHOMA
     Dosage: FREQ:24 H;CONTINUOUS INFUSION OVER 4 DAYS
     Route: 042
  11. VINCRISTINE SULFATE. [Suspect]
     Active Substance: VINCRISTINE SULFATE
     Indication: BURKITT^S LYMPHOMA
     Dosage: FREQ:24 H;CONTINUOUS OVER 4 DAYS
     Route: 042
  12. IFOSFAMIDE. [Suspect]
     Active Substance: IFOSFAMIDE
     Indication: BURKITT^S LYMPHOMA
     Dosage: 2 G/M2 OVER 5 DAYS
     Route: 042
  13. CEFTAZIDIME. [Concomitant]
     Active Substance: CEFTAZIDIME
     Indication: PRODUCT USED FOR UNKNOWN INDICATION
     Dosage: UNK

REACTIONS (6)
  - Disease progression [Fatal]
  - Product use issue [Unknown]
  - Pyrexia [Recovered/Resolved]
  - Febrile bone marrow aplasia [Unknown]
  - Rash [Unknown]
  - Off label use [Unknown]
